FAERS Safety Report 6274976-4 (Version None)
Quarter: 2009Q3

REPORT INFORMATION
  Report Type: 
  Country: None (occurrence: None)
  Receive Date: 20090721
  Receipt Date: 20090713
  Transmission Date: 20100115
  Serious: Yes (Other)
  Sender: FDA-Public Use
  Company Number: DE-B.I. PHARMACEUTICALS,INC./RIDGEFIELD-2009-DE-04843DE

PATIENT
  Sex: Male

DRUGS (2)
  1. SIFROL [Suspect]
     Dosage: AMOUNT OF 3 DAY DOSES
     Route: 048
  2. LEVODOPA [Suspect]
     Dosage: AMOUNT OF 3 DAY DOSES
     Route: 048

REACTIONS (3)
  - CIRCULATORY COLLAPSE [None]
  - OVERDOSE [None]
  - VOMITING [None]
